FAERS Safety Report 17066395 (Version 1)
Quarter: 2019Q4

REPORT INFORMATION
  Report Type: Spontaneous
  Country: DE (occurrence: DE)
  Receive Date: 20191122
  Receipt Date: 20191122
  Transmission Date: 20200122
  Serious: Yes (Other)
  Sender: FDA-Public Use
  Company Number: DE-MYLANLABS-2019M1112736

PATIENT
  Sex: Female

DRUGS (1)
  1. MOXIFLOXACIN. [Suspect]
     Active Substance: MOXIFLOXACIN
     Indication: RESPIRATORY TRACT INFECTION
     Dosage: 400 MILLIGRAM, QD
     Dates: start: 2015, end: 2015

REACTIONS (17)
  - Tendon pain [Recovering/Resolving]
  - Gait disturbance [Not Recovered/Not Resolved]
  - Anxiety [Recovered/Resolved]
  - Fatigue [Recovering/Resolving]
  - Pain in extremity [Recovering/Resolving]
  - Diabetes mellitus [Recovering/Resolving]
  - Alopecia [Recovering/Resolving]
  - Arthralgia [Recovering/Resolving]
  - Feeling abnormal [Recovering/Resolving]
  - Joint stiffness [Recovering/Resolving]
  - Vitreous opacities [Recovering/Resolving]
  - Panic attack [Recovered/Resolved]
  - Dizziness [Recovering/Resolving]
  - Personality change [Recovering/Resolving]
  - Food intolerance [Recovering/Resolving]
  - Sleep disorder [Recovered/Resolved]
  - Allergy to chemicals [Recovering/Resolving]

NARRATIVE: CASE EVENT DATE: 2015
